FAERS Safety Report 4660462-1 (Version None)
Quarter: 2005Q2

REPORT INFORMATION
  Report Type: 
  Country: None (occurrence: None)
  Receive Date: 20050512
  Receipt Date: 20050329
  Transmission Date: 20051028
  Serious: Yes (Death)
  Sender: FDA-Public Use
  Company Number: GB-GLAXOSMITHKLINE-B0376068A

PATIENT
  Age: 36 Year
  Sex: Female

DRUGS (2)
  1. SEROXAT [Suspect]
     Indication: DEPRESSION
     Route: 048
  2. PAIN KILLERS [Concomitant]
     Indication: HEADACHE
     Route: 065

REACTIONS (6)
  - ABDOMINAL PAIN [None]
  - DYSPNOEA [None]
  - PULMONARY CONGESTION [None]
  - PULMONARY OEDEMA [None]
  - RASH [None]
  - THERAPEUTIC AGENT TOXICITY [None]
